FAERS Safety Report 24832200 (Version 2)
Quarter: 2025Q1

REPORT INFORMATION
  Report Type: Spontaneous
  Country: US (occurrence: US)
  Receive Date: 20250110
  Receipt Date: 20250131
  Transmission Date: 20250409
  Serious: No
  Sender: ABBVIE
  Company Number: US-ABBVIE-6079412

PATIENT
  Age: 65 Year
  Sex: Female

DRUGS (2)
  1. BOTOX [Suspect]
     Active Substance: ONABOTULINUMTOXINA
     Indication: Pain in jaw
     Route: 065
     Dates: start: 20241121, end: 20241121
  2. PREGABALIN [Concomitant]
     Active Substance: PREGABALIN
     Indication: Sciatica

REACTIONS (2)
  - Lung disorder [Not Recovered/Not Resolved]
  - Product preparation error [Unknown]

NARRATIVE: CASE EVENT DATE: 20241201
